FAERS Safety Report 16337088 (Version 1)
Quarter: 2019Q2

REPORT INFORMATION
  Report Type: Spontaneous
  Country: US (occurrence: US)
  Receive Date: 20190520
  Receipt Date: 20190520
  Transmission Date: 20190711
  Serious: Yes (Life-Threatening)
  Sender: FDA-Public Use
  Company Number: None

PATIENT
  Age: 53 Year
  Sex: Male
  Weight: 79.88 kg

DRUGS (1)
  1. DURVALUMAB. [Suspect]
     Active Substance: DURVALUMAB
     Dosage: ?          OTHER FREQUENCY:EVERY 2 WEEKS;?
     Route: 041
     Dates: start: 20190507

REACTIONS (7)
  - Malaise [None]
  - Headache [None]
  - Disorientation [None]
  - Acute kidney injury [None]
  - Dehydration [None]
  - Lactic acidosis [None]
  - Blood glucose increased [None]

NARRATIVE: CASE EVENT DATE: 19790517
